FAERS Safety Report 7906049-6 (Version None)
Quarter: 2011Q4

REPORT INFORMATION
  Report Type: 
  Country: None (occurrence: None)
  Receive Date: 20111110
  Receipt Date: 20111110
  Transmission Date: 20120403
  Serious: No
  Sender: FDA-Public Use
  Company Number: None

PATIENT
  Sex: Male
  Weight: 71 kg

DRUGS (1)
  1. TAXOL [Suspect]
     Indication: NON-SMALL CELL LUNG CANCER STAGE IV
     Dosage: 90 MG
     Route: 041
     Dates: start: 20111025, end: 20111025

REACTIONS (3)
  - PRURITUS [None]
  - OEDEMA PERIPHERAL [None]
  - RASH MACULO-PAPULAR [None]
